FAERS Safety Report 7811407-4 (Version None)
Quarter: 2011Q4

REPORT INFORMATION
  Report Type: 
  Country: None (occurrence: None)
  Receive Date: 20111013
  Receipt Date: 20111005
  Transmission Date: 20120403
  Serious: Yes (Other)
  Sender: FDA-Public Use
  Company Number: GB-BRISTOL-MYERS SQUIBB COMPANY-16132359

PATIENT
  Age: 55 Year
  Sex: Male

DRUGS (3)
  1. HYDROXYUREA [Suspect]
     Indication: CHRONIC MYELOID LEUKAEMIA
     Dosage: DOSE TEXT:5/DAY
     Dates: start: 20110415
  2. NEUPRO [Interacting]
     Indication: PARKINSON'S DISEASE
     Dosage: PATCH
     Route: 062
     Dates: start: 20101025, end: 20110620
  3. SINEMET [Concomitant]
     Indication: PARKINSON'S DISEASE
     Dates: start: 20090304

REACTIONS (4)
  - APPLICATION SITE PRURITUS [None]
  - DRUG INTERACTION [None]
  - APPLICATION SITE ERYTHEMA [None]
  - APPLICATION SITE VESICLES [None]
